FAERS Safety Report 5143224-0 (Version None)
Quarter: 2006Q4

REPORT INFORMATION
  Report Type: 
  Country: None (occurrence: None)
  Receive Date: 20061030
  Receipt Date: 20061011
  Transmission Date: 20070319
  Serious: Yes (Other)
  Sender: FDA-Public Use
  Company Number: GB200604001325

PATIENT
  Age: 14 Year
  Sex: Male
  Weight: 57.5 kg

DRUGS (2)
  1. STRATTERA [Suspect]
     Dosage: SEE IMAGE, ORAL
     Route: 048
     Dates: start: 20050513, end: 20060113
  2. STRATTERA [Suspect]
     Dosage: SEE IMAGE, ORAL
     Route: 048
     Dates: start: 20060113, end: 20060323

REACTIONS (3)
  - AGGRESSION [None]
  - DEPRESSED MOOD [None]
  - PERSONALITY CHANGE [None]
